FAERS Safety Report 14531976 (Version 1)
Quarter: 2018Q1

REPORT INFORMATION
  Report Type: Spontaneous
  Country: TR (occurrence: TR)
  Receive Date: 20180214
  Receipt Date: 20180214
  Transmission Date: 20180509
  Serious: Yes (Hospitalization, Disabling, Other)
  Sender: FDA-Public Use
  Company Number: TR-ALEXION PHARMACEUTICALS INC.-A201801700

PATIENT
  Age: 27 Year
  Sex: Male
  Weight: 64 kg

DRUGS (2)
  1. SOLIRIS [Suspect]
     Active Substance: ECULIZUMAB
     Dosage: 1200 MG, Q2W
     Route: 042
  2. SOLIRIS [Suspect]
     Active Substance: ECULIZUMAB
     Indication: ATYPICAL HAEMOLYTIC URAEMIC SYNDROME
     Dosage: 900 MG, QW
     Route: 042
     Dates: start: 201705

REACTIONS (6)
  - Pleural effusion [Not Recovered/Not Resolved]
  - Pneumonia [Recovering/Resolving]
  - Cardiac failure [Recovering/Resolving]
  - Dyspnoea [Unknown]
  - Inappropriate schedule of drug administration [Unknown]
  - Atypical haemolytic uraemic syndrome [Unknown]

NARRATIVE: CASE EVENT DATE: 201709
